FAERS Safety Report 8868539 (Version 1)
Quarter: 2012Q4

REPORT INFORMATION
  Report Type: 
  Country: US (occurrence: US)
  Receive Date: 20121026
  Receipt Date: 20121026
  Transmission Date: 20130627
  Serious: No
  Sender: FDA-Public Use
  Company Number: US-AMGEN-USASP2012042067

PATIENT
  Age: 49 Year
  Sex: Female

DRUGS (7)
  1. ENBREL [Suspect]
     Indication: PRODUCT USED FOR UNKNOWN INDICATION
     Dosage: 50 mg, qwk
     Route: 058
  2. OMEPRAZOLE [Concomitant]
     Dosage: 40 mg, UNK
  3. PROCHLORPERAZINE                   /00013304/ [Concomitant]
     Dosage: 5 mg, UNK
  4. METHOTREXATE [Concomitant]
     Dosage: 50 mg/2ml
  5. XOPENEX HFA [Concomitant]
  6. FOLIC ACID [Concomitant]
  7. XOPENEX [Concomitant]
     Dosage: 1.25/3ml

REACTIONS (2)
  - Erythema [Unknown]
  - Pruritus [Unknown]
